FAERS Safety Report 15369924 (Version 1)
Quarter: 2018Q3

REPORT INFORMATION
  Report Type: Report from Study
  Country: ES (occurrence: ES)
  Receive Date: 20180911
  Receipt Date: 20180911
  Transmission Date: 20181010
  Serious: Yes (Hospitalization)
  Sender: FDA-Public Use
  Company Number: ES-PFIZER INC-2018358821

PATIENT
  Age: 38 Year
  Sex: Male

DRUGS (1)
  1. SERTRALINE HCL [Suspect]
     Active Substance: SERTRALINE HYDROCHLORIDE
     Dosage: UNK
     Dates: start: 201602, end: 20160304

REACTIONS (4)
  - Gastrointestinal motility disorder [Recovering/Resolving]
  - Disturbance in attention [Recovering/Resolving]
  - Depressed mood [Recovering/Resolving]
  - Epigastric discomfort [Recovering/Resolving]

NARRATIVE: CASE EVENT DATE: 201602
